APPROVED DRUG PRODUCT: NABUMETONE
Active Ingredient: NABUMETONE
Strength: 750MG
Dosage Form/Route: TABLET;ORAL
Application: A076009 | Product #002 | TE Code: AB
Applicant: CHARTWELL MOLECULES LLC
Approved: Jan 24, 2003 | RLD: No | RS: No | Type: RX